FAERS Safety Report 9262704 (Version 2)
Quarter: 2013Q2

REPORT INFORMATION
  Report Type: Spontaneous
  Country: US (occurrence: US)
  Receive Date: 20130430
  Receipt Date: 20130603
  Transmission Date: 20140414
  Serious: No
  Sender: FDA-Public Use
  Company Number: US-PFIZER INC-2013131613

PATIENT
  Age: 54 Year
  Sex: Female
  Weight: 48.53 kg

DRUGS (2)
  1. LYRICA [Suspect]
     Indication: NEURALGIA
     Dosage: UNK
     Dates: start: 201304, end: 201304
  2. LYRICA [Suspect]
     Indication: PARAESTHESIA

REACTIONS (2)
  - Abdominal pain [Recovered/Resolved]
  - Abdominal pain lower [Not Recovered/Not Resolved]
